FAERS Safety Report 20202356 (Version 1)
Quarter: 2021Q4

REPORT INFORMATION
  Report Type: Other
  Country: None (occurrence: IT)
  Receive Date: 20211217
  Receipt Date: 20211217
  Transmission Date: 20220303
  Serious: Yes (Other)
  Sender: FDA-Public Use
  Company Number: IT-LEO Pharma-340013

PATIENT
  Age: 61 Year
  Sex: Female

DRUGS (3)
  1. OXYGEN [Suspect]
     Active Substance: OXYGEN
     Indication: COVID-19
     Route: 055
  2. REMDESIVIR [Suspect]
     Active Substance: REMDESIVIR
  3. UNSPECIFIED INGREDIENT [Suspect]
     Active Substance: UNSPECIFIED INGREDIENT

REACTIONS (1)
  - Pericarditis [Recovered/Resolved]
